FAERS Safety Report 25204324 (Version 4)
Quarter: 2025Q2

REPORT INFORMATION
  Report Type: Spontaneous
  Country: PL (occurrence: PL)
  Receive Date: 20250416
  Receipt Date: 20250516
  Transmission Date: 20250717
  Serious: Yes (Other)
  Sender: ORGANON
  Company Number: PL-SANDOZ-SDZ2025PL016976

PATIENT
  Age: 5 Year
  Sex: Male

DRUGS (1)
  1. MOMETASONE FUROATE [Suspect]
     Active Substance: MOMETASONE FUROATE
     Indication: Product used for unknown indication
     Route: 065

REACTIONS (3)
  - Epistaxis [Unknown]
  - Condition aggravated [Unknown]
  - Sneezing [Unknown]
